FAERS Safety Report 23763252 (Version 1)
Quarter: 2024Q2

REPORT INFORMATION
  Report Type: Spontaneous
  Country: US (occurrence: None)
  Receive Date: 20240419
  Receipt Date: 20240419
  Transmission Date: 20240715
  Serious: No
  Sender: FDA-Public Use
  Company Number: None

PATIENT
  Age: 46 Year
  Sex: Female
  Weight: 85.5 kg

DRUGS (20)
  1. DUPIXENT [Suspect]
     Active Substance: DUPILUMAB
     Indication: Eczema
     Dosage: 2 INJECTIONS  2 PENS INTIAL DOS SUBCUTANEOUS?
     Route: 058
     Dates: start: 20240406, end: 20240419
  2. OPZELURA [Concomitant]
     Active Substance: RUXOLITINIB PHOSPHATE
  3. Desoximethozone [Concomitant]
  4. PHENTERMINE [Concomitant]
     Active Substance: PHENTERMINE
  5. ONE-A-DAY NOS [Concomitant]
     Active Substance: MINERALS\VITAMINS
  6. HERBALS\TURMERIC [Concomitant]
     Active Substance: HERBALS\TURMERIC
  7. GLUCOSAMINE [Concomitant]
  8. chondrotin [Concomitant]
  9. DIETARY SUPPLEMENT\HERBALS\MILK THISTLE [Concomitant]
     Active Substance: MILK THISTLE
  10. COLLAGEN [Concomitant]
     Active Substance: COLLAGEN
  11. b w/C complex [Concomitant]
  12. SOY ISOFLAVONES [Concomitant]
     Active Substance: SOY ISOFLAVONES
  13. reservatrol [Concomitant]
  14. andrographis [Concomitant]
  15. OMEGA 3 [Concomitant]
     Active Substance: CAPSAICIN
  16. COD LIVER OIL [Concomitant]
     Active Substance: COD LIVER OIL
  17. Phytosterol.quercetin [Concomitant]
  18. CLA [Concomitant]
  19. Nac [Concomitant]
  20. hair vitamins [Concomitant]

REACTIONS (3)
  - Ocular hyperaemia [None]
  - Conjunctivitis [None]
  - Photophobia [None]

NARRATIVE: CASE EVENT DATE: 20240416
